FAERS Safety Report 22604944 (Version 1)
Quarter: 2023Q2

REPORT INFORMATION
  Report Type: Other
  Country: ZA (occurrence: None)
  Receive Date: 20230615
  Receipt Date: 20230615
  Transmission Date: 20230721
  Serious: Yes (Other)
  Sender: FDA-Public Use
  Company Number: ZA-ROCHE-3366266

PATIENT
  Sex: Female

DRUGS (1)
  1. OCREVUS [Suspect]
     Active Substance: OCRELIZUMAB
     Indication: Multiple sclerosis
     Dosage: THERE AFTER 600 MG EVERY 6 MONTH
     Route: 042
     Dates: start: 20220715

REACTIONS (6)
  - Haemangioma [Unknown]
  - Multiple sclerosis [Unknown]
  - Cerebral ischaemia [Unknown]
  - White matter lesion [Unknown]
  - Internal capsule infarction [Unknown]
  - Magnetic resonance imaging head abnormal [Unknown]
